FAERS Safety Report 6052740-9 (Version None)
Quarter: 2009Q1

REPORT INFORMATION
  Report Type: 
  Country: None (occurrence: None)
  Receive Date: 20090127
  Receipt Date: 20090120
  Transmission Date: 20090719
  Serious: Yes (Hospitalization)
  Sender: FDA-Public Use
  Company Number: GB-BRISTOL-MYERS SQUIBB COMPANY-14477913

PATIENT
  Age: 53 Year
  Sex: Male
  Weight: 55 kg

DRUGS (3)
  1. EFAVIRENZ [Suspect]
     Indication: HIV TEST
     Dates: start: 20081111, end: 20081121
  2. TRUVADA [Suspect]
  3. COTRIM [Concomitant]

REACTIONS (2)
  - ABASIA [None]
  - DIZZINESS [None]
